FAERS Safety Report 17356155 (Version 11)
Quarter: 2020Q4

REPORT INFORMATION
  Report Type: Spontaneous
  Country: JP (occurrence: JP)
  Receive Date: 20200131
  Receipt Date: 20201204
  Transmission Date: 20210113
  Serious: Yes (Death, Life-Threatening, Other)
  Sender: FDA-Public Use
  Company Number: JP-JNJFOC-20200120645

PATIENT
  Age: 83 Year
  Sex: Male
  Weight: 73 kg

DRUGS (12)
  1. AMBROXOL HYDROCHLORIDE [Concomitant]
     Active Substance: AMBROXOL HYDROCHLORIDE
     Dosage: AFTER DINNER
     Route: 048
     Dates: end: 20200106
  2. PREDNISOLONE. [Concomitant]
     Active Substance: PREDNISOLONE
     Dosage: AFTER BREAKFAST
     Route: 048
     Dates: start: 20190426, end: 20191114
  3. AMLODIPINE [Concomitant]
     Active Substance: AMLODIPINE BESYLATE
     Dosage: AFTER BREAKFAST
     Route: 048
     Dates: end: 20200106
  4. REMINYL [Suspect]
     Active Substance: GALANTAMINE
     Indication: PRODUCT USED FOR UNKNOWN INDICATION
     Dosage: AFTER BREAKFAST AND AFTER DINNER
     Route: 048
     Dates: end: 20200106
  5. ERLEADA [Suspect]
     Active Substance: APALUTAMIDE
     Indication: PROSTATE CANCER
     Route: 048
     Dates: start: 20191115, end: 20191226
  6. TORASEMIDE [Concomitant]
     Active Substance: TORSEMIDE
     Dosage: AFTER BREAKFAST
     Route: 048
     Dates: end: 20200106
  7. ERLEADA [Suspect]
     Active Substance: APALUTAMIDE
     Indication: PROSTATE CANCER
     Route: 048
     Dates: start: 20191227, end: 20200106
  8. FUROSEMIDE. [Suspect]
     Active Substance: FUROSEMIDE
     Dosage: AFTER BREAKFAST
     Route: 048
     Dates: start: 20191227, end: 20200106
  9. SHAKUYAKUKANZOTO [Concomitant]
     Active Substance: HERBALS
     Dosage: AFTER BREAKFAST AND AFTER DINNER
     Route: 048
     Dates: end: 20200106
  10. PREDNISOLONE. [Concomitant]
     Active Substance: PREDNISOLONE
     Dosage: AFTER BREAKFAST
     Route: 048
     Dates: start: 20191115, end: 20200107
  11. LANSOPRAZOLE. [Suspect]
     Active Substance: LANSOPRAZOLE
     Route: 048
     Dates: start: 20190426, end: 20200106
  12. BEPOTASTINE BESILATE OD [Concomitant]
     Dosage: AFTER BREAKFAST AND AFTER DINNER
     Route: 048

REACTIONS (7)
  - Pneumonia [Recovered/Resolved]
  - Cardiac failure [Unknown]
  - Off label use [Unknown]
  - Toxic epidermal necrolysis [Recovering/Resolving]
  - Product use in unapproved indication [Unknown]
  - Pneumonia bacterial [Fatal]
  - Cytomegalovirus infection reactivation [Not Recovered/Not Resolved]

NARRATIVE: CASE EVENT DATE: 20191115
